FAERS Safety Report 5404101-0 (Version None)
Quarter: 2007Q3

REPORT INFORMATION
  Report Type: 
  Country: None (occurrence: None)
  Receive Date: 20070731
  Receipt Date: 20070719
  Transmission Date: 20080115
  Serious: Yes (Hospitalization)
  Sender: FDA-Public Use
  Company Number: GXKR2007IE06250

PATIENT
  Age: 78 Year
  Sex: Female

DRUGS (5)
  1. SIMVASTATIN [Suspect]
     Indication: HYPERCHOLESTEROLAEMIA
     Dosage: 40 MG, QD,
  2. PHENYTOIN [Suspect]
     Indication: CONVULSION
     Dosage: 300 MG, QD,
  3. BISOPROLOL FUMARATE [Concomitant]
  4. BENDROFLUMETHIAZIDE                       (BENDROFLUMETHIAZIDE) [Concomitant]
  5. ACETYLSALICYLIC ACID SRT [Concomitant]

REACTIONS (5)
  - BLOOD CHOLESTEROL INCREASED [None]
  - COORDINATION ABNORMAL [None]
  - DRUG INTERACTION [None]
  - DRUG TOXICITY [None]
  - MEDICATION ERROR [None]
